FAERS Safety Report 10155737 (Version 1)
Quarter: 2014Q2

REPORT INFORMATION
  Report Type: Spontaneous
  Country: GB (occurrence: GB)
  Receive Date: 20140506
  Receipt Date: 20140506
  Transmission Date: 20141212
  Serious: Yes (Disabling)
  Sender: FDA-Public Use
  Company Number: GB-GALDERMA-GB14001662

PATIENT
  Age: 73 Year
  Sex: Female
  Weight: 66 kg

DRUGS (26)
  1. DOXYCYCLINE [Suspect]
     Route: 048
     Dates: start: 20140423
  2. ALENDRONIC ACID [Concomitant]
     Dates: start: 20140303
  3. AMITRIPTYLINE HYDROCHLORIDE [Concomitant]
     Dates: start: 20140110, end: 20140306
  4. AMOXICILLIN [Concomitant]
     Dates: start: 20140409, end: 20140414
  5. BECONASE [Concomitant]
     Dates: start: 20140416
  6. BISOPROLOL [Concomitant]
     Dates: start: 20140409
  7. CARBAMAZEPINE [Concomitant]
     Dates: start: 20140110, end: 20140306
  8. CO-AMOXICLAV [Concomitant]
     Dates: start: 20140211, end: 20140304
  9. CO-CODAMOL [Concomitant]
     Dates: start: 20140416, end: 20140420
  10. DIGOXIN [Concomitant]
     Dates: start: 20140110, end: 20140306
  11. FLUCLOXACILLIN [Concomitant]
     Dates: start: 20140417, end: 20140424
  12. FUROSEMIDE [Concomitant]
     Dates: start: 20140127
  13. FUSIDIC ACID [Concomitant]
     Dates: start: 20140130, end: 20140227
  14. GABAPENTIN [Concomitant]
     Dates: start: 20140123
  15. HIRUDOID [Concomitant]
     Dates: start: 20140116, end: 20140130
  16. HYDROXOCOBALAMIN [Concomitant]
     Dates: start: 20140206, end: 20140207
  17. HYDROXOCOBALAMIN [Concomitant]
     Dates: start: 20140214, end: 20140215
  18. LEVOTHYROXINE [Concomitant]
     Dates: start: 20140110, end: 20140306
  19. NITROFURANTOIN [Concomitant]
     Dates: start: 20140130, end: 20140206
  20. OMEPRAZOLE [Concomitant]
     Dates: start: 20140107, end: 20140204
  21. PREDNISOLONE [Concomitant]
     Dates: start: 20140110, end: 20140306
  22. SIMVASTATIN [Concomitant]
     Dates: start: 20140110
  23. SPIRONOLACTONE [Concomitant]
     Dates: start: 20140205, end: 20140305
  24. TRIMETHOPRIM [Concomitant]
     Dates: start: 20140210, end: 20140213
  25. VERAPAMIL HYDROCHLORIDE [Concomitant]
     Dates: start: 20140110, end: 20140306
  26. WARFARIN SODIUM [Concomitant]
     Dates: start: 20140110

REACTIONS (1)
  - Nausea [Recovered/Resolved]
